FAERS Safety Report 7255107-0 (Version None)
Quarter: 2011Q1

REPORT INFORMATION
  Report Type: 
  Country: None (occurrence: None)
  Receive Date: 20110129
  Receipt Date: 20100208
  Transmission Date: 20110831
  Serious: No
  Sender: FDA-Public Use
  Company Number: US-ABBOTT-10P-163-0625153-00

PATIENT
  Sex: Female
  Weight: 78.996 kg

DRUGS (2)
  1. HUMIRA [Suspect]
     Dates: end: 20100208
  2. HUMIRA [Suspect]
     Indication: PSORIASIS
     Dosage: DAY 1
     Dates: start: 20100203, end: 20100203

REACTIONS (3)
  - RASH PAPULAR [None]
  - RASH GENERALISED [None]
  - GLOSSITIS [None]
